FAERS Safety Report 17882365 (Version 13)
Quarter: 2023Q4

REPORT INFORMATION
  Report Type: Spontaneous
  Country: US (occurrence: US)
  Receive Date: 20200610
  Receipt Date: 20231114
  Transmission Date: 20240110
  Serious: No
  Sender: FDA-Public Use
  Company Number: US-PFIZER INC-2019454161

PATIENT
  Age: 80 Year
  Sex: Female
  Weight: 47.17 kg

DRUGS (3)
  1. PREMARIN [Suspect]
     Active Substance: ESTROGENS, CONJUGATED
     Indication: Menopause
     Dosage: UNK
     Dates: start: 201204, end: 201204
  2. PREMARIN [Suspect]
     Active Substance: ESTROGENS, CONJUGATED
     Indication: Menopausal symptoms
     Dosage: 0.625 MG, (1X/DAY - 2 X WEEK)
     Route: 048
     Dates: end: 202008
  3. PREMARIN [Suspect]
     Active Substance: ESTROGENS, CONJUGATED
     Indication: Atrophic vulvovaginitis

REACTIONS (3)
  - Chronic obstructive pulmonary disease [Unknown]
  - Dysphonia [Unknown]
  - Movement disorder [Unknown]
